FAERS Safety Report 4655308-1 (Version None)
Quarter: 2005Q2

REPORT INFORMATION
  Report Type: 
  Country: None (occurrence: None)
  Receive Date: 20050505
  Receipt Date: 20050420
  Transmission Date: 20051028
  Serious: Yes (Hospitalization)
  Sender: FDA-Public Use
  Company Number: MK200504-0275-1

PATIENT
  Age: 39 Year
  Sex: Male

DRUGS (1)
  1. I131 SODIUM IODIDE THERAPEUTIC [Suspect]
     Indication: BASEDOW'S DISEASE
     Dosage: 12.5 MCI, ONE TIME, PO
     Route: 048

REACTIONS (11)
  - CHOLELITHIASIS [None]
  - CHOLESTASIS [None]
  - DIARRHOEA [None]
  - HAEMOGLOBIN DECREASED [None]
  - HEART RATE INCREASED [None]
  - HEPATOMEGALY [None]
  - HYPERTENSIVE HEART DISEASE [None]
  - HYPOTHYROIDISM [None]
  - IATROGENIC INJURY [None]
  - TEMPERATURE INTOLERANCE [None]
  - WEIGHT DECREASED [None]
